FAERS Safety Report 9909773 (Version 1)
Quarter: 2014Q1

REPORT INFORMATION
  Report Type: Spontaneous
  Country: US (occurrence: None)
  Receive Date: 20140212
  Receipt Date: 20140212
  Transmission Date: 20141002
  Serious: Yes (Other)
  Sender: FDA-Public Use
  Company Number: 2014-US-001311

PATIENT
  Age: 60 Year
  Sex: Male

DRUGS (3)
  1. XYREM (SODIUM OXYBATE) ORAL SOLUTION, 500 MG/ML [Suspect]
     Indication: NARCOLEPSY
     Route: 048
     Dates: start: 201004
  2. CARVEDILOL (CARVEDILOL) [Concomitant]
  3. BRILLINTA (TICAGRELOR) [Concomitant]

REACTIONS (2)
  - Myocardial infarction [None]
  - Coronary arterial stent insertion [None]
